FAERS Safety Report 5588262-9 (Version None)
Quarter: 2008Q1

REPORT INFORMATION
  Report Type: 
  Country: None (occurrence: None)
  Receive Date: 20080111
  Receipt Date: 20080103
  Transmission Date: 20080703
  Serious: Yes (Hospitalization)
  Sender: FDA-Public Use
  Company Number: FR-ASTRAZENECA-2008CG00008

PATIENT
  Age: 29113 Day
  Sex: Female

DRUGS (10)
  1. INEXIUM [Suspect]
     Route: 048
     Dates: start: 20070923, end: 20071012
  2. PROFENID [Suspect]
     Indication: PROCEDURAL PAIN
     Route: 042
     Dates: start: 20070921, end: 20070921
  3. PERFALGAN [Suspect]
     Indication: PROCEDURAL PAIN
     Route: 042
     Dates: start: 20070921, end: 20070924
  4. DAFALGAN [Suspect]
     Indication: PROCEDURAL PAIN
     Route: 048
     Dates: start: 20070922, end: 20071001
  5. ACETAMINOPHEN AND TRAMADOL HCL [Suspect]
     Indication: PROCEDURAL PAIN
     Dosage: 37.5 + 325 MG THREE TIMES A DAY
     Route: 048
     Dates: start: 20070922, end: 20071012
  6. CLAMOXYL [Suspect]
     Indication: ANTIBIOTIC PROPHYLAXIS
     Route: 042
     Dates: start: 20070921, end: 20070921
  7. GENTAMICIN [Suspect]
     Indication: ANTIBIOTIC PROPHYLAXIS
     Route: 042
     Dates: start: 20070921, end: 20070921
  8. CEFACIDAL [Suspect]
     Indication: ANTIBIOTIC PROPHYLAXIS
     Route: 041
     Dates: start: 20070922, end: 20070923
  9. LAROXYL [Suspect]
     Route: 048
  10. LOVENOX [Suspect]
     Indication: THROMBOSIS PROPHYLAXIS
     Route: 058
     Dates: start: 20070921, end: 20071019

REACTIONS (2)
  - LEUKOPENIA [None]
  - NEUTROPENIA [None]
